FAERS Safety Report 9980816 (Version 1)
Quarter: 2014Q1

REPORT INFORMATION
  Report Type: Spontaneous
  Country: US (occurrence: US)
  Receive Date: 20140307
  Receipt Date: 20140307
  Transmission Date: 20141002
  Serious: Yes (Other)
  Sender: FDA-Public Use
  Company Number: US-ACCORD-022253

PATIENT
  Sex: Male

DRUGS (7)
  1. CLONAZEPAM [Suspect]
     Indication: PRODUCT USED FOR UNKNOWN INDICATION
  2. METHOXAMINE [Suspect]
     Indication: PRODUCT USED FOR UNKNOWN INDICATION
  3. CARBOCISTEINE [Suspect]
     Indication: PRODUCT USED FOR UNKNOWN INDICATION
  4. 7-AMINOCLONAZEPAM [Suspect]
     Indication: PRODUCT USED FOR UNKNOWN INDICATION
  5. METHYLENEDIOXYAMPHETAMINE [Suspect]
     Indication: PRODUCT USED FOR UNKNOWN INDICATION
  6. METHYLENEDIOXYAMPHETAMINE [Suspect]
     Indication: PRODUCT USED FOR UNKNOWN INDICATION
  7. DIPHENHYDRAMINE [Suspect]
     Indication: PRODUCT USED FOR UNKNOWN INDICATION

REACTIONS (10)
  - Toxicity to various agents [Unknown]
  - Psychomotor skills impaired [Unknown]
  - Speech disorder [Unknown]
  - Ocular hyperaemia [Unknown]
  - Eyelid ptosis [Unknown]
  - Lacrimation increased [Unknown]
  - Muscle twitching [Unknown]
  - Masked facies [Unknown]
  - Hypokinesia [Unknown]
  - Nystagmus [Unknown]
